FAERS Safety Report 19609756 (Version 2)
Quarter: 2021Q3

REPORT INFORMATION
  Report Type: Spontaneous
  Country: US (occurrence: US)
  Receive Date: 20210726
  Receipt Date: 20210804
  Transmission Date: 20211014
  Serious: No
  Sender: FDA-Public Use
  Company Number: US-PFIZER INC-2021563371

PATIENT
  Age: 79 Year
  Sex: Female

DRUGS (2)
  1. TOLTERODINE TARTRATE. [Suspect]
     Active Substance: TOLTERODINE TARTRATE
     Dosage: UNK
  2. TROSPIUM [Suspect]
     Active Substance: TROSPIUM
     Dosage: 60 MG

REACTIONS (1)
  - Drug ineffective [Unknown]
